FAERS Safety Report 18689576 (Version 1)
Quarter: 2020Q4

REPORT INFORMATION
  Report Type: Spontaneous
  Country: FI (occurrence: FI)
  Receive Date: 20201231
  Receipt Date: 20201231
  Transmission Date: 20210114
  Serious: Yes (Life-Threatening)
  Sender: FDA-Public Use
  Company Number: FI-009507513-2012FIN012926

PATIENT
  Age: 45 Year
  Sex: Male

DRUGS (4)
  1. BRIDION [Suspect]
     Active Substance: SUGAMMADEX
     Indication: PRODUCT USED FOR UNKNOWN INDICATION
     Dosage: 200,MG,X1
     Route: 040
     Dates: start: 20200904, end: 20200904
  2. ONDANSETRON ACCORD [Concomitant]
     Active Substance: ONDANSETRON
     Indication: PROPHYLAXIS
     Dosage: 4,MG,X1
     Route: 040
     Dates: start: 20200904, end: 20200904
  3. OFTAN C-C [Concomitant]
     Indication: PROPHYLAXIS
     Dosage: 1,GTT,X1
     Route: 047
     Dates: start: 20200904, end: 20200904
  4. TETRACAINE HYDROCHLORIDE. [Concomitant]
     Active Substance: TETRACAINE HYDROCHLORIDE
     Indication: PROPHYLAXIS
     Dosage: 1,GTT,X1
     Route: 047
     Dates: start: 20200904, end: 20200904

REACTIONS (9)
  - Heart rate increased [Recovered/Resolved]
  - Drug hypersensitivity [Recovered/Resolved]
  - Erythema [Recovered/Resolved]
  - Lip oedema [Recovered/Resolved]
  - Sinus tachycardia [Recovered/Resolved]
  - Tongue oedema [Recovered/Resolved]
  - Blood pressure decreased [Recovered/Resolved]
  - Urticaria [Recovered/Resolved]
  - Mean arterial pressure decreased [Recovered/Resolved]

NARRATIVE: CASE EVENT DATE: 20200904
